FAERS Safety Report 7445272-4 (Version None)
Quarter: 2011Q2

REPORT INFORMATION
  Report Type: 
  Country: None (occurrence: None)
  Receive Date: 20110429
  Receipt Date: 20110418
  Transmission Date: 20111010
  Serious: Yes (Hospitalization)
  Sender: FDA-Public Use
  Company Number: FR-JNJFOC-20110306341

PATIENT
  Age: 29 Year
  Sex: Female

DRUGS (3)
  1. REMICADE [Suspect]
     Indication: CROHN'S DISEASE
     Route: 042
  2. REMICADE [Suspect]
     Route: 042
  3. REMICADE [Suspect]
     Route: 042

REACTIONS (10)
  - INFUSION RELATED REACTION [None]
  - HYPERTENSION [None]
  - DYSPNOEA [None]
  - HOT FLUSH [None]
  - NAUSEA [None]
  - CHEST DISCOMFORT [None]
  - ERYTHEMA [None]
  - MALAISE [None]
  - VOMITING [None]
  - TACHYCARDIA [None]
